FAERS Safety Report 24587846 (Version 2)
Quarter: 2024Q4

REPORT INFORMATION
  Report Type: Spontaneous
  Country: GB (occurrence: GB)
  Receive Date: 20241107
  Receipt Date: 20241204
  Transmission Date: 20250115
  Serious: Yes (Death, Life-Threatening, Other)
  Sender: RANBAXY
  Company Number: GB-MHRA-MED-202410221352241670-ZFNMR

PATIENT
  Sex: Female

DRUGS (1)
  1. TADALAFIL [Suspect]
     Active Substance: TADALAFIL
     Indication: Product used for unknown indication
     Dosage: UNK
     Route: 065

REACTIONS (1)
  - Death [Fatal]
